FAERS Safety Report 4364788-0 (Version None)
Quarter: 2004Q2

REPORT INFORMATION
  Report Type: 
  Country: None (occurrence: None)
  Receive Date: 20040526
  Receipt Date: 20030326
  Transmission Date: 20050107
  Serious: No
  Sender: FDA-Public Use
  Company Number: US-GLAXOSMITHKLINE-A0401975A

PATIENT
  Age: 26 Year
  Sex: Female

DRUGS (2)
  1. LOTRONEX [Suspect]
     Indication: ILL-DEFINED DISORDER
     Route: 048
  2. PREVACID [Concomitant]

REACTIONS (6)
  - ANAL FISSURE [None]
  - COLITIS [None]
  - GASTRITIS [None]
  - HAEMATEMESIS [None]
  - HIATUS HERNIA [None]
  - MUSCLE CRAMP [None]
